FAERS Safety Report 16823559 (Version 1)
Quarter: 2019Q3

REPORT INFORMATION
  Report Type: Report from Study
  Country: US (occurrence: US)
  Receive Date: 20190918
  Receipt Date: 20190918
  Transmission Date: 20191005
  Serious: Yes (Death)
  Sender: FDA-Public Use
  Company Number: US-TAIHO ONCOLOGY  INC-EU-2019-03055

PATIENT
  Age: 81 Year
  Sex: Male

DRUGS (7)
  1. ASPIRIN. [Concomitant]
     Active Substance: ASPIRIN
     Dosage: NI
  2. VERAPAMIL [Concomitant]
     Active Substance: VERAPAMIL HYDROCHLORIDE
     Dosage: NI
  3. ENALAPRIL [Concomitant]
     Active Substance: ENALAPRIL
     Dosage: NI
  4. MORPHINE [Concomitant]
     Active Substance: MORPHINE
     Dosage: NI
  5. OMEPRAZOLE. [Concomitant]
     Active Substance: OMEPRAZOLE
     Dosage: NI
  6. DEXAMETHASONE. [Concomitant]
     Active Substance: DEXAMETHASONE
     Dosage: NI
  7. LONSURF [Suspect]
     Active Substance: TIPIRACIL HYDROCHLORIDE\TRIFLURIDINE
     Indication: COLON CANCER
     Route: 048
     Dates: start: 20190315, end: 201909

REACTIONS (1)
  - Death [Fatal]

NARRATIVE: CASE EVENT DATE: 20190909
